FAERS Safety Report 11325187 (Version 1)
Quarter: 2015Q3

REPORT INFORMATION
  Report Type: Spontaneous
  Country: CN (occurrence: CN)
  Receive Date: 20150730
  Receipt Date: 20150730
  Transmission Date: 20151125
  Serious: Yes (Hospitalization)
  Sender: FDA-Public Use
  Company Number: CN-GLAXOSMITHKLINE-CN2015GSK106167

PATIENT
  Age: 4 Year
  Sex: Female

DRUGS (1)
  1. FLIXOTIDE [Suspect]
     Active Substance: FLUTICASONE PROPIONATE
     Indication: ASTHMA
     Dosage: (ONE PUFF) 125 UG, BID
     Route: 055
     Dates: start: 201506

REACTIONS (4)
  - Nasopharyngitis [Recovering/Resolving]
  - Asthma [Recovered/Resolved]
  - Drug administration error [Unknown]
  - Overdose [Not Recovered/Not Resolved]

NARRATIVE: CASE EVENT DATE: 201506
